FAERS Safety Report 20450607 (Version 1)
Quarter: 2022Q1

REPORT INFORMATION
  Report Type: Spontaneous
  Country: US (occurrence: None)
  Receive Date: 20220209
  Receipt Date: 20220209
  Transmission Date: 20220423
  Serious: Yes (Life-Threatening)
  Sender: FDA-Public Use
  Company Number: None

PATIENT
  Age: 35 Year
  Sex: Female
  Weight: 155.25 kg

DRUGS (10)
  1. MONTELUKAST [Suspect]
     Active Substance: MONTELUKAST SODIUM
     Indication: Hypersensitivity
     Dosage: FREQUENCY : DAILY;?
     Route: 048
     Dates: start: 20210316, end: 20210522
  2. ZOLOFT [Concomitant]
     Active Substance: SERTRALINE HYDROCHLORIDE
  3. RISPERDAL [Concomitant]
     Active Substance: RISPERIDONE
  4. HYDROCODONE [Concomitant]
     Active Substance: HYDROCODONE
  5. KLONOPIN [Concomitant]
     Active Substance: CLONAZEPAM
  6. LEVOTHYROXINE [Concomitant]
     Active Substance: LEVOTHYROXINE
  7. PRAZOSIN [Concomitant]
     Active Substance: PRAZOSIN
  8. TOPAMAX [Concomitant]
     Active Substance: TOPIRAMATE
  9. LAMICTAL [Concomitant]
     Active Substance: LAMOTRIGINE
  10. LITHIUM [Concomitant]
     Active Substance: LITHIUM

REACTIONS (1)
  - Suicide attempt [None]

NARRATIVE: CASE EVENT DATE: 20210522
